FAERS Safety Report 16915846 (Version 3)
Quarter: 2020Q1

REPORT INFORMATION
  Report Type: Report from Study
  Country: IT (occurrence: IT)
  Receive Date: 20191014
  Receipt Date: 20200305
  Transmission Date: 20200409
  Serious: Yes (Life-Threatening, Hospitalization)
  Sender: FDA-Public Use
  Company Number: IT-SA-2019SA277039

PATIENT
  Age: 42 Year
  Sex: Female
  Weight: 135 kg

DRUGS (6)
  1. KONAKION [Concomitant]
     Active Substance: PHYTONADIONE
     Indication: CHOLECYSTITIS ACUTE
     Dosage: 2 MG, PRN
     Route: 048
     Dates: start: 201907, end: 201908
  2. PANTOPRAZOLE [Concomitant]
     Active Substance: PANTOPRAZOLE
     Indication: GASTRITIS PROPHYLAXIS
     Dosage: 40 MG, QD
     Route: 048
     Dates: start: 2015
  3. KONAKION [Concomitant]
     Active Substance: PHYTONADIONE
     Indication: INTERNATIONAL NORMALISED RATIO ABNORMAL
     Dosage: 5 MG, PRN
     Route: 048
     Dates: start: 201907, end: 201908
  4. ALEMTUZUMAB [Suspect]
     Active Substance: ALEMTUZUMAB
     Indication: RELAPSING-REMITTING MULTIPLE SCLEROSIS
     Dosage: UNK
     Route: 041
     Dates: start: 20190507
  5. ALEMTUZUMAB [Suspect]
     Active Substance: ALEMTUZUMAB
     Dosage: UNK
     Route: 041
     Dates: start: 20180507
  6. KONAKION [Concomitant]
     Active Substance: PHYTONADIONE
     Dosage: 2.5 MG, PRN
     Route: 048
     Dates: start: 201907, end: 201908

REACTIONS (6)
  - Sepsis [Recovered/Resolved]
  - Pulmonary embolism [Recovered/Resolved]
  - Cholecystitis infective [Recovered/Resolved]
  - Cholecystitis acute [Recovered/Resolved]
  - Erysipelas [Not Recovered/Not Resolved]
  - Perihepatic abscess [Recovered/Resolved]

NARRATIVE: CASE EVENT DATE: 20190719
